FAERS Safety Report 10080630 (Version 2)
Quarter: 2014Q4

REPORT INFORMATION
  Report Type: Spontaneous
  Country: DE (occurrence: None)
  Receive Date: 20140414
  Receipt Date: 20141020
  Transmission Date: 20150528
  Serious: Yes (Hospitalization, Other)
  Sender: FDA-Public Use
  Company Number: 2014-19325

PATIENT
  Sex: Male

DRUGS (1)
  1. EYLEA [Suspect]
     Active Substance: AFLIBERCEPT
     Indication: AGE-RELATED MACULAR DEGENERATION
     Dosage: 2 MG INTRAOCULAR
     Dates: start: 2012

REACTIONS (5)
  - Bladder operation [None]
  - Intentional product misuse [None]
  - Visual acuity reduced [None]
  - Urinary incontinence [None]
  - Procedural pain [None]
